FAERS Safety Report 4844134-6 (Version None)
Quarter: 2005Q4

REPORT INFORMATION
  Report Type: 
  Country: None (occurrence: None)
  Receive Date: 20051202
  Receipt Date: 20051111
  Transmission Date: 20060501
  Serious: Yes (Other)
  Sender: FDA-Public Use
  Company Number: GB-SANOFI-SYNTHELABO-A01200507852

PATIENT
  Age: 62 Year
  Sex: Female

DRUGS (16)
  1. ELOXATIN [Suspect]
     Indication: COLON CANCER
     Route: 042
     Dates: start: 20050907, end: 20050907
  2. ELOXATIN [Suspect]
     Route: 041
     Dates: start: 20050920, end: 20050920
  3. ELOXATIN [Suspect]
     Route: 041
     Dates: start: 20051004, end: 20051004
  4. ELOXATIN [Suspect]
  5. ELOXATIN [Suspect]
  6. ELOXATIN [Suspect]
  7. ELOXATIN [Suspect]
  8. ELOXATIN [Suspect]
  9. ELOXATIN [Suspect]
  10. ELOXATIN [Suspect]
  11. ELOXATIN [Suspect]
  12. FLUOROURACIL [Suspect]
     Indication: COLON CANCER
     Dosage: 3900 MG/625 MG
     Route: 041
  13. ONDANSETRON [Concomitant]
     Route: 042
  14. DEXAMETHASONE [Concomitant]
     Route: 042
  15. METOCLOPRAMIDE [Concomitant]
     Route: 048
  16. RISEDRONATE [Concomitant]

REACTIONS (1)
  - AMAUROSIS FUGAX [None]
